FAERS Safety Report 8368109-8 (Version None)
Quarter: 2012Q2

REPORT INFORMATION
  Report Type: 
  Country: None (occurrence: None)
  Receive Date: 20120517
  Receipt Date: 20120504
  Transmission Date: 20120825
  Serious: No
  Sender: FDA-Public Use
  Company Number: US-ASTRAZENECA-2012SE29405

PATIENT
  Age: 75 Year
  Sex: Female

DRUGS (3)
  1. PRILOSEC [Suspect]
     Route: 048
  2. NEXIUM [Concomitant]
  3. PRILOSEC OTC [Suspect]
     Route: 048

REACTIONS (4)
  - DYSPEPSIA [None]
  - RENAL PAIN [None]
  - GASTRIC INFECTION [None]
  - GASTRIC HAEMORRHAGE [None]
